FAERS Safety Report 10091702 (Version 1)
Quarter: 2014Q2

REPORT INFORMATION
  Report Type: Spontaneous
  Country: US (occurrence: US)
  Receive Date: 20140421
  Receipt Date: 20140421
  Transmission Date: 20141212
  Serious: No
  Sender: FDA-Public Use
  Company Number: US-PURDUE-USA-2014-0110459

PATIENT
  Sex: Male

DRUGS (2)
  1. OXYCODONE HCL IMMEDIATE RELEASE (91-490) [Suspect]
     Indication: PAIN
     Route: 048
  2. BUTRANS [Suspect]
     Indication: PAIN
     Route: 062

REACTIONS (1)
  - Drug effect decreased [Unknown]
